FAERS Safety Report 13987490 (Version 1)
Quarter: 2017Q3

REPORT INFORMATION
  Report Type: Spontaneous
  Country: BR (occurrence: BR)
  Receive Date: 20170919
  Receipt Date: 20170919
  Transmission Date: 20171128
  Serious: Yes (Life-Threatening, Hospitalization)
  Sender: FDA-Public Use
  Company Number: BR-PURDUE-GBR-2017-0048778

PATIENT

DRUGS (9)
  1. FENTANYL. [Suspect]
     Active Substance: FENTANYL
     Indication: SEDATION
     Dosage: 50 MCG, SEE TEXT
     Route: 008
  2. FENTANYL. [Suspect]
     Active Substance: FENTANYL
     Dosage: 50 MCG, SEE TEXT
     Route: 042
  3. DISTILLED WATER [Concomitant]
     Dosage: 2 ML, SEE TEXT
     Route: 008
  4. NON-PMN MORPHINE SULFATE [Suspect]
     Active Substance: MORPHINE SULFATE
     Indication: EPIDURAL ANAESTHESIA
     Dosage: 2 MG, SEE TEXT
     Route: 008
  5. DISTILLED WATER [Concomitant]
     Dosage: 3 ML, SEE TEXT
     Route: 008
  6. MIDAZOLAM [Suspect]
     Active Substance: MIDAZOLAM HYDROCHLORIDE
     Indication: EPIDURAL ANAESTHESIA
     Dosage: 4 MG, SEE TEXT
     Route: 042
  7. BUPIVACAINE. [Suspect]
     Active Substance: BUPIVACAINE
     Indication: EPIDURAL ANAESTHESIA
     Dosage: 12ML, SEE TEXT
     Route: 008
  8. BUPIVACAINE. [Suspect]
     Active Substance: BUPIVACAINE
     Dosage: 8 ML, SEE TEXT
     Route: 008
  9. FENTANYL. [Suspect]
     Active Substance: FENTANYL
     Dosage: 50 MCG, SEE TEXT
     Route: 008

REACTIONS (4)
  - Oliguria [Recovering/Resolving]
  - Pulmonary oedema [Recovering/Resolving]
  - Oxygen saturation decreased [Recovered/Resolved]
  - Cardiac arrest [Recovered/Resolved]
